FAERS Safety Report 23090476 (Version 1)
Quarter: 2023Q4

REPORT INFORMATION
  Report Type: Spontaneous
  Country: US (occurrence: None)
  Receive Date: 20231019
  Receipt Date: 20231019
  Transmission Date: 20240110
  Serious: Yes (Life-Threatening, Hospitalization, Disabling, Other)
  Sender: FDA-Public Use
  Company Number: None

PATIENT
  Age: 50 Year
  Sex: Female
  Weight: 81.19 kg

DRUGS (20)
  1. FENOFIBRATE [Suspect]
     Active Substance: FENOFIBRATE
  2. CLOPIDOGREL [Suspect]
     Active Substance: CLOPIDOGREL BISULFATE
  3. CIPROFLOXACIN [Suspect]
     Active Substance: CIPROFLOXACIN
  4. VALSARTAN [Suspect]
     Active Substance: VALSARTAN
  5. DIPYRIDAMOLE [Suspect]
     Active Substance: DIPYRIDAMOLE
  6. CLOPIDOGREL [Suspect]
  7. SIMVASTATIN [Suspect]
     Active Substance: SIMVASTATIN
  8. VALSARTAN [Suspect]
     Active Substance: VALSARTAN
  9. DIPYRIDAMOLE [Suspect]
  10. SUCRALFATE [Suspect]
     Active Substance: SUCRALFATE
  11. DEVICE [Concomitant]
     Active Substance: DEVICE
  12. DILTIAZEM [Concomitant]
     Active Substance: DILTIAZEM
  13. METOPROLOL [Concomitant]
     Active Substance: METOPROLOL
  14. LOSARTAN [Concomitant]
     Active Substance: LOSARTAN
  15. DEPAKOTE [Concomitant]
     Active Substance: DIVALPROEX SODIUM
  16. METFORMIN [Concomitant]
     Active Substance: METFORMIN HYDROCHLORIDE
  17. TRULICITY [Concomitant]
     Active Substance: DULAGLUTIDE
  18. VITAMIN D3 [Concomitant]
     Active Substance: CHOLECALCIFEROL
  19. CINNAMON [Concomitant]
     Active Substance: CINNAMON
  20. CRANBERRY [Concomitant]
     Active Substance: CRANBERRY

REACTIONS (2)
  - Acute kidney injury [None]
  - Pain in extremity [None]
